FAERS Safety Report 5974964-9 (Version None)
Quarter: 2008Q4

REPORT INFORMATION
  Report Type: 
  Country: None (occurrence: None)
  Receive Date: 20081202
  Receipt Date: 20081128
  Transmission Date: 20090506
  Serious: Yes (Hospitalization)
  Sender: FDA-Public Use
  Company Number: CH-PFIZER INC-2008100946

PATIENT
  Age: 49 Year
  Sex: Female

DRUGS (3)
  1. RELPAX [Suspect]
     Indication: MIGRAINE
     Route: 048
     Dates: end: 20081021
  2. RELPAX [Suspect]
     Dosage: TEXT:40MG BID  TDD:80MG
     Route: 048
     Dates: start: 20081021, end: 20081021
  3. DIOVAN HCT [Concomitant]
     Dosage: TEXT:12.5MG/80MG ONE TABLET DAILY
     Route: 048

REACTIONS (3)
  - ANGINA PECTORIS [None]
  - EJECTION FRACTION ABNORMAL [None]
  - ELECTROCARDIOGRAM T WAVE INVERSION [None]
